FAERS Safety Report 22338202 (Version 1)
Quarter: 2023Q2

REPORT INFORMATION
  Report Type: Report from Study
  Country: US (occurrence: US)
  Receive Date: 20230518
  Receipt Date: 20230518
  Transmission Date: 20230721
  Serious: No
  Sender: FDA-Public Use
  Company Number: US-002147023-NVSC2023US112714

PATIENT
  Sex: Male
  Weight: 113.4 kg

DRUGS (7)
  1. AMLODIPINE [Suspect]
     Active Substance: AMLODIPINE BESYLATE
     Indication: Psoriasis
     Dosage: UNKNOWN
     Route: 065
  2. ATENOLOL [Suspect]
     Active Substance: ATENOLOL
     Indication: Psoriasis
     Dosage: UNKNOWN
     Route: 065
  3. LOSARTAN [Suspect]
     Active Substance: LOSARTAN
     Indication: Psoriasis
     Dosage: UNKNOWN
     Route: 065
  4. TRIAMCINOLONE [Suspect]
     Active Substance: TRIAMCINOLONE
     Indication: Psoriasis
     Dosage: UNKNOWN
     Route: 065
  5. FAMOTIDINE [Suspect]
     Active Substance: FAMOTIDINE
     Indication: Psoriasis
     Dosage: UNKNOWN
     Route: 065
  6. CITALOPRAM HYDROBROMIDE [Suspect]
     Active Substance: CITALOPRAM HYDROBROMIDE
     Indication: Psoriasis
     Dosage: UNKNOWN
     Route: 065
  7. FENOFIBRATE [Suspect]
     Active Substance: FENOFIBRATE
     Indication: Psoriasis
     Dosage: UNKNOWN
     Route: 065

REACTIONS (5)
  - Psoriasis [Not Recovered/Not Resolved]
  - Arthralgia [Unknown]
  - Skin plaque [Unknown]
  - Pruritus [Unknown]
  - Drug ineffective [Unknown]
